FAERS Safety Report 8422710-1 (Version None)
Quarter: 2012Q2

REPORT INFORMATION
  Report Type: 
  Country: None (occurrence: None)
  Receive Date: 20120608
  Receipt Date: 20120604
  Transmission Date: 20120825
  Serious: No
  Sender: FDA-Public Use
  Company Number: US-BAYER-2012-056110

PATIENT
  Age: 45 Year
  Sex: Female

DRUGS (2)
  1. MIRENA [Suspect]
     Indication: CONTRACEPTION
     Dosage: 20 MCG/24HR, UNK
     Dates: start: 20111205, end: 20120516
  2. MIRENA [Suspect]
     Indication: MENORRHAGIA
     Dosage: UNK
     Route: 015

REACTIONS (1)
  - DEVICE EXPULSION [None]
